FAERS Safety Report 5301396-9 (Version None)
Quarter: 2007Q2

REPORT INFORMATION
  Report Type: 
  Country: None (occurrence: None)
  Receive Date: 20070418
  Receipt Date: 20070406
  Transmission Date: 20071010
  Serious: Yes (Disabling)
  Sender: FDA-Public Use
  Company Number: FR-PFIZER INC-2007026524

PATIENT
  Sex: Female

DRUGS (3)
  1. CHAMPIX [Suspect]
     Dosage: DAILY DOSE:2MG
  2. CHAMPIX [Suspect]
  3. FOSAMAX [Concomitant]

REACTIONS (5)
  - CHEST PAIN [None]
  - INSOMNIA [None]
  - NAUSEA [None]
  - PARAESTHESIA MUCOSAL [None]
  - PHLEBITIS [None]
